FAERS Safety Report 20824437 (Version 1)
Quarter: 2022Q2

REPORT INFORMATION
  Report Type: Report from Study
  Country: BR (occurrence: BR)
  Receive Date: 20220513
  Receipt Date: 20220513
  Transmission Date: 20220721
  Serious: Yes (Other)
  Sender: FDA-Public Use
  Company Number: BR-JNJFOC-20220244094

PATIENT
  Age: 39 Year
  Sex: Female
  Weight: 58 kg

DRUGS (2)
  1. INFLIXIMAB [Suspect]
     Active Substance: INFLIXIMAB
     Indication: Colitis ulcerative
     Route: 042
     Dates: start: 20210223, end: 20220118
  2. INFLIXIMAB [Suspect]
     Active Substance: INFLIXIMAB
     Route: 042
     Dates: start: 20220315

REACTIONS (5)
  - Tuberculosis [Unknown]
  - Drug hypersensitivity [Unknown]
  - Nodule [Unknown]
  - Abnormal faeces [Unknown]
  - Arthralgia [Unknown]

NARRATIVE: CASE EVENT DATE: 20220101
